FAERS Safety Report 17260340 (Version 3)
Quarter: 2020Q1

REPORT INFORMATION
  Report Type: Spontaneous
  Country: US (occurrence: US)
  Receive Date: 20200112
  Receipt Date: 20200226
  Transmission Date: 20200409
  Serious: Yes (Life-Threatening, Hospitalization, Disabling, Other)
  Sender: FDA-Public Use
  Company Number: US-009507513-2001USA003015

PATIENT
  Sex: Female

DRUGS (1)
  1. NUVARING [Suspect]
     Active Substance: ETHINYL ESTRADIOL\ETONOGESTREL
     Indication: CONTRACEPTION
     Dosage: STRENGTH: .015/.12 (UNITS NOT REPORTED); ONE RING FOR 3 WEEKS
     Route: 067
     Dates: start: 201906, end: 201907

REACTIONS (1)
  - Cerebral venous sinus thrombosis [Recovered/Resolved]

NARRATIVE: CASE EVENT DATE: 201907
